FAERS Safety Report 23803335 (Version 1)
Quarter: 2024Q2

REPORT INFORMATION
  Report Type: Spontaneous
  Country: US (occurrence: None)
  Receive Date: 20240430
  Receipt Date: 20240430
  Transmission Date: 20240716
  Serious: Yes (Other)
  Sender: FDA-Public Use
  Company Number: None

PATIENT
  Age: 52 Year
  Sex: Female
  Weight: 99 kg

DRUGS (19)
  1. OZEMPIC [Suspect]
     Active Substance: SEMAGLUTIDE
     Indication: Diabetes mellitus
     Dosage: OTHER QUANTITY : 1 INJECTION(S);?OTHER FREQUENCY : 1 WEEKLY;?
     Route: 058
     Dates: start: 20240430, end: 20240430
  2. METFORMIN [Concomitant]
  3. PRAVASTATIN [Concomitant]
  4. GABAPENTIN [Concomitant]
  5. LISINOPRIL [Concomitant]
  6. AMLODIPINE [Concomitant]
  7. Freestyle Sensor 3 [Concomitant]
  8. DULOXETINE [Concomitant]
  9. FARXIGA [Concomitant]
     Active Substance: DAPAGLIFLOZIN PROPANEDIOL
  10. OZEMPIC [Concomitant]
  11. ALBUTEROL [Concomitant]
     Active Substance: ALBUTEROL
  12. LORAZEPAM [Concomitant]
     Active Substance: LORAZEPAM
  13. OMEPRAZOLE [Concomitant]
     Active Substance: DONEPEZIL HYDROCHLORIDE\OMEPRAZOLE\OMEPRAZOLE MAGNESIUM
  14. NORTRIPTYLINE [Concomitant]
  15. VITAMIN D [Concomitant]
     Active Substance: VITAMIN D NOS
  16. VITAMIN B12 [Concomitant]
     Active Substance: CYANOCOBALAMIN
  17. Women^s Vitamin [Concomitant]
  18. MAGNESIUM [Concomitant]
  19. Keto ACV [Concomitant]

REACTIONS (11)
  - Nausea [None]
  - Vomiting [None]
  - Headache [None]
  - Pain [None]
  - Somnolence [None]
  - Somnolence [None]
  - Crying [None]
  - Screaming [None]
  - Product availability issue [None]
  - Bone pain [None]
  - Feeling abnormal [None]

NARRATIVE: CASE EVENT DATE: 20240430
